APPROVED DRUG PRODUCT: CARMUSTINE
Active Ingredient: CARMUSTINE
Strength: 300MG/VIAL
Dosage Form/Route: POWDER;INTRAVENOUS
Application: N215000 | Product #002
Applicant: ACCORD HEALTHCARE INC
Approved: May 16, 2022 | RLD: Yes | RS: No | Type: DISCN